FAERS Safety Report 8866856 (Version 1)
Quarter: 2012Q4

REPORT INFORMATION
  Report Type: 
  Country: US (occurrence: US)
  Receive Date: 20121025
  Receipt Date: 20121025
  Transmission Date: 20130627
  Serious: No
  Sender: FDA-Public Use
  Company Number: US-AMGEN-USASP2012013585

PATIENT
  Age: 63 Year
  Sex: Male

DRUGS (13)
  1. ENBREL [Suspect]
     Indication: PRODUCT USED FOR UNKNOWN INDICATION
     Dosage: 50 mg, qwk
     Route: 058
  2. METFORMIN [Concomitant]
     Dosage: 500 mg, UNK
  3. SIMVASTATIN [Concomitant]
     Dosage: 40 mg, UNK
  4. GLIMEPIRIDE [Concomitant]
     Dosage: 2 mg, UNK
  5. FOLIC ACID [Concomitant]
     Dosage: 1 mg, UNK
  6. HYDROCHLOROTH [Concomitant]
     Dosage: 12.5 mg, UNK
  7. METOPROLOL [Concomitant]
     Dosage: 100 mg, UNK
  8. VITAMIN D /00107901/ [Concomitant]
  9. SULFASALAZIN [Concomitant]
     Dosage: 500 mg, UNK
  10. ACTOS [Concomitant]
     Dosage: 45 mg, UNK
  11. CALCIUM [Concomitant]
     Dosage: UNK
  12. MULTIVITAMIN                       /00831701/ [Concomitant]
  13. ASPIRIN LOW [Concomitant]
     Dosage: 81 mg, UNK

REACTIONS (2)
  - Injection site induration [Unknown]
  - Injection site bruising [Unknown]
